FAERS Safety Report 17318388 (Version 1)
Quarter: 2020Q1

REPORT INFORMATION
  Report Type: Spontaneous
  Country: US (occurrence: US)
  Receive Date: 20200124
  Receipt Date: 20200124
  Transmission Date: 20200409
  Serious: No
  Sender: FDA-Public Use
  Company Number: US-009507513-2001USA006848

PATIENT
  Age: 15 Year
  Sex: Female
  Weight: 47.17 kg

DRUGS (1)
  1. NEXPLANON [Suspect]
     Active Substance: ETONOGESTREL
     Dosage: 1 ROD ON THE LEFT ARM EVERY 3 YEARS
     Route: 059
     Dates: start: 20200116

REACTIONS (3)
  - Device difficult to use [Unknown]
  - Product quality issue [Unknown]
  - Complication of device insertion [Unknown]

NARRATIVE: CASE EVENT DATE: 20200116
